FAERS Safety Report 4621820-4 (Version None)
Quarter: 2005Q1

REPORT INFORMATION
  Report Type: 
  Country: None (occurrence: None)
  Receive Date: 20050329
  Receipt Date: 20050317
  Transmission Date: 20050727
  Serious: Yes (Other)
  Sender: FDA-Public Use
  Company Number: 200510971FR

PATIENT
  Age: 54 Year
  Sex: Female

DRUGS (5)
  1. KETEK [Suspect]
     Indication: PYREXIA
     Route: 048
     Dates: start: 20050315, end: 20050316
  2. CLIMENE [Concomitant]
     Indication: TRACHEITIS
  3. ULTRA-LEVURE [Concomitant]
     Route: 048
     Dates: start: 20050315
  4. SOLUTRICINE [Concomitant]
     Route: 048
     Dates: start: 20050315
  5. PNEUMOREL [Concomitant]
     Route: 048
     Dates: start: 20050315, end: 20050315

REACTIONS (5)
  - LOSS OF CONSCIOUSNESS [None]
  - MALAISE [None]
  - NAUSEA [None]
  - PALLOR [None]
  - PARAESTHESIA [None]
